FAERS Safety Report 5450271-8 (Version None)
Quarter: 2007Q3

REPORT INFORMATION
  Report Type: 
  Country: None (occurrence: None)
  Receive Date: 20070912
  Receipt Date: 20070906
  Transmission Date: 20080115
  Serious: Yes (Other)
  Sender: FDA-Public Use
  Company Number: BR-SANOFI-SYNTHELABO-A01200707081

PATIENT
  Sex: Female

DRUGS (7)
  1. KYTRIL [Concomitant]
     Route: 042
  2. AVASTIN [Concomitant]
     Route: 042
  3. LEUCOVORIN CALCIUM [Concomitant]
     Route: 042
     Dates: start: 20070214
  4. FLUOROURACIL INJ [Concomitant]
     Route: 040
     Dates: start: 20070214
  5. FLUOROURACIL INJ [Concomitant]
     Route: 041
     Dates: start: 20070214
  6. ELOXATIN [Suspect]
     Indication: RECTAL CANCER METASTATIC
     Route: 042
     Dates: start: 20070214, end: 20070514
  7. ELOXATIN [Suspect]

REACTIONS (10)
  - COUGH [None]
  - DYSPNOEA [None]
  - ERYTHEMA [None]
  - EYE PRURITUS [None]
  - LARYNGOSPASM [None]
  - OCULAR HYPERAEMIA [None]
  - PRURITUS [None]
  - SKIN DISCOLOURATION [None]
  - THROAT TIGHTNESS [None]
  - TREMOR [None]
